FAERS Safety Report 8581667-3 (Version None)
Quarter: 2012Q3

REPORT INFORMATION
  Report Type: 
  Country: None (occurrence: None)
  Receive Date: 20120809
  Receipt Date: 20120803
  Transmission Date: 20120928
  Serious: Yes (Death)
  Sender: FDA-Public Use
  Company Number: CA-UCBSA-062999

PATIENT
  Age: 21 Year
  Sex: Male
  Weight: 137 kg

DRUGS (2)
  1. LACOSAMIDE [Suspect]
     Indication: EPILEPSY
     Route: 048
     Dates: start: 20111115
  2. LAMOTRIGINE [Concomitant]

REACTIONS (1)
  - CONVULSION [None]
